FAERS Safety Report 12976978 (Version 6)
Quarter: 2020Q2

REPORT INFORMATION
  Report Type: Report from Study
  Country: US (occurrence: US)
  Receive Date: 20161128
  Receipt Date: 20200520
  Transmission Date: 20200713
  Serious: Yes (Other)
  Sender: FDA-Public Use
  Company Number: PHHY2016US160379

PATIENT
  Age: 21 Year
  Sex: Female

DRUGS (3)
  1. PREDNISONE. [Concomitant]
     Active Substance: PREDNISONE
     Indication: MULTIPLE SCLEROSIS RELAPSE
     Dosage: UNK
     Route: 065
     Dates: start: 20160624, end: 20160626
  2. GILENYA [Suspect]
     Active Substance: FINGOLIMOD HYDROCHLORIDE
     Indication: MULTIPLE SCLEROSIS
     Dosage: UNK, QD
     Route: 048
  3. SOLU-MEDROL [Concomitant]
     Active Substance: METHYLPREDNISOLONE SODIUM SUCCINATE
     Indication: MULTIPLE SCLEROSIS RELAPSE
     Dosage: UNK
     Route: 065
     Dates: start: 20160621, end: 20160623

REACTIONS (19)
  - Muscular weakness [Unknown]
  - Paraesthesia [Unknown]
  - Hypoaesthesia [Unknown]
  - Balance disorder [Unknown]
  - Palpitations [Not Recovered/Not Resolved]
  - Lymphopenia [Unknown]
  - Nephrolithiasis [Unknown]
  - Muscle spasms [Unknown]
  - Visual impairment [Unknown]
  - Concomitant disease aggravated [Unknown]
  - Blepharospasm [Unknown]
  - Nystagmus [Recovered/Resolved]
  - Drug hypersensitivity [Recovered/Resolved]
  - Blood bilirubin increased [Unknown]
  - Palpitations [Recovered/Resolved]
  - Nystagmus [Not Recovered/Not Resolved]
  - Muscle twitching [Unknown]
  - Nausea [Unknown]
  - Depression [Unknown]

NARRATIVE: CASE EVENT DATE: 20160616
